FAERS Safety Report 7355862-5 (Version None)
Quarter: 2011Q1

REPORT INFORMATION
  Report Type: 
  Country: None (occurrence: None)
  Receive Date: 20110316
  Receipt Date: 20110315
  Transmission Date: 20110831
  Serious: Yes (Other)
  Sender: FDA-Public Use
  Company Number: ES-BRACCO-000417

PATIENT
  Age: 25 Year
  Sex: Male
  Weight: 85 kg

DRUGS (2)
  1. MULTIHANCE [Suspect]
     Indication: PHAEOCHROMOCYTOMA
     Dosage: CONTRAST MEDIUM ADMINISTERED WITHOUT TEMPERING USING AN AUMOMATIC INJECTOR SYSTEM AT 3 ML/S
     Route: 042
     Dates: start: 20110204, end: 20110204
  2. MULTIHANCE [Suspect]
     Indication: NUCLEAR MAGNETIC RESONANCE IMAGING
     Dosage: CONTRAST MEDIUM ADMINISTERED WITHOUT TEMPERING USING AN AUMOMATIC INJECTOR SYSTEM AT 3 ML/S
     Route: 042
     Dates: start: 20110204, end: 20110204

REACTIONS (2)
  - BRONCHOSPASM [None]
  - LARYNGEAL OEDEMA [None]
